FAERS Safety Report 19761428 (Version 1)
Quarter: 2021Q3

REPORT INFORMATION
  Report Type: Spontaneous
  Country: US (occurrence: US)
  Receive Date: 20210826
  Receipt Date: 20210826
  Transmission Date: 20211014
  Serious: No
  Sender: FDA-Public Use
  Company Number: None

PATIENT
  Age: 35 Year
  Sex: Male
  Weight: 99.79 kg

DRUGS (1)
  1. NALTREXONE [Suspect]
     Active Substance: NALTREXONE
     Indication: ALCOHOLISM
     Dosage: ?          OTHER FREQUENCY:OTHER;OTHER ROUTE:IM?
     Route: 030
     Dates: start: 20200616, end: 20210521

REACTIONS (3)
  - Incorrect dose administered by device [None]
  - Syringe issue [None]
  - Device malfunction [None]

NARRATIVE: CASE EVENT DATE: 20210521
